FAERS Safety Report 4544522-1 (Version None)
Quarter: 2004Q4

REPORT INFORMATION
  Report Type: 
  Country: None (occurrence: None)
  Receive Date: 20041230
  Receipt Date: 20041223
  Transmission Date: 20050328
  Serious: Yes (Death)
  Sender: FDA-Public Use
  Company Number: 2004-12-1268

PATIENT
  Age: 56 Year
  Sex: Female

DRUGS (1)
  1. TEMODAR [Suspect]
     Indication: GASTRIC CANCER
     Dosage: ORAL
     Route: 048

REACTIONS (1)
  - DEATH [None]
